FAERS Safety Report 10231236 (Version 2)
Quarter: 2014Q2

REPORT INFORMATION
  Report Type: Spontaneous
  Country: US (occurrence: US)
  Receive Date: 20140611
  Receipt Date: 20140611
  Transmission Date: 20141212
  Serious: Yes (Hospitalization)
  Sender: FDA-Public Use
  Company Number: US-GLAXOSMITHKLINE-A0862612A

PATIENT
  Age: 59 Year
  Sex: Male
  Weight: 120.5 kg

DRUGS (5)
  1. AVANDIA [Suspect]
     Indication: DIABETES MELLITUS
     Route: 048
     Dates: start: 200006
  2. GLUCOTROL [Concomitant]
  3. LOPRESSOR [Concomitant]
  4. RHYTHMOL [Concomitant]
  5. LOTENSIN [Concomitant]

REACTIONS (2)
  - Ischaemic stroke [Unknown]
  - Speech disorder [Unknown]
